FAERS Safety Report 9752527 (Version 2)
Quarter: 2015Q4

REPORT INFORMATION
  Report Type: Report from Study
  Country: JP (occurrence: JP)
  Receive Date: 20131213
  Receipt Date: 20151209
  Transmission Date: 20160305
  Serious: Yes (Death, Life-Threatening, Hospitalization, Other)
  Sender: FDA-Public Use
  Company Number: JP-009507513-1312JPN004490

PATIENT
  Age: 72 Year
  Sex: Male
  Weight: 67.1 kg

DRUGS (21)
  1. KEPPRA [Concomitant]
     Active Substance: LEVETIRACETAM
     Dosage: DAILY DOSE UNKNOWN
     Route: 048
     Dates: end: 20121216
  2. TEMOZOLOMIDE. [Suspect]
     Active Substance: TEMOZOLOMIDE
     Dosage: 200 MG/M2, QD
     Route: 041
     Dates: start: 20130225, end: 20130301
  3. TEGRETOL [Concomitant]
     Active Substance: CARBAMAZEPINE
     Dosage: DAILY DOSE UNKNOWN
     Route: 048
     Dates: end: 20121216
  4. THEO-DUR [Concomitant]
     Active Substance: THEOPHYLLINE ANHYDROUS
     Dosage: DAILY DOSE UNKNOWN
     Route: 048
     Dates: end: 20121216
  5. ALEVIATIN [Suspect]
     Active Substance: PHENYTOIN SODIUM
     Dosage: DAILY DOSE UNKNOWN
     Route: 048
     Dates: start: 20121217, end: 20130110
  6. OMEPRAZOLE. [Suspect]
     Active Substance: OMEPRAZOLE
     Indication: PROPHYLAXIS AGAINST GASTROINTESTINAL ULCER
     Dosage: DAILY DOSE UNKNOWN
     Route: 042
     Dates: start: 20121217, end: 20130104
  7. TEMODAL [Suspect]
     Active Substance: TEMOZOLOMIDE
     Indication: GLIOBLASTOMA MULTIFORME
     Dosage: UNK
     Route: 048
     Dates: start: 20111209, end: 20121204
  8. HISHIPHAGEN C [Concomitant]
     Indication: PROPHYLAXIS
     Dosage: DAILY DOSE UNKNOWN
     Route: 042
     Dates: start: 20121225, end: 20130128
  9. TEMOZOLOMIDE. [Suspect]
     Active Substance: TEMOZOLOMIDE
     Dosage: 200 MG/M2, QD
     Route: 041
     Dates: start: 20130325, end: 20130329
  10. CERCINE [Concomitant]
     Active Substance: DIAZEPAM
     Dosage: DAILY DOSE UNKNOWN
     Route: 042
     Dates: start: 20121215, end: 20121216
  11. TAMIFLU [Concomitant]
     Active Substance: OSELTAMIVIR PHOSPHATE
     Indication: ANTIVIRAL PROPHYLAXIS
     Dosage: UNK
     Route: 048
     Dates: start: 20121225, end: 20130103
  12. PASIL [Suspect]
     Active Substance: PAZUFLOXACIN MESILATE
     Indication: PNEUMONIA ASPIRATION
     Dosage: DAILY DOSE UNKNOWN
     Route: 041
     Dates: start: 20121228, end: 20130101
  13. PARIET [Concomitant]
     Active Substance: RABEPRAZOLE SODIUM
     Indication: PROPHYLAXIS
     Dosage: DAILY DOSE UNKNOWN
     Route: 048
     Dates: end: 20121216
  14. TEMOZOLOMIDE. [Suspect]
     Active Substance: TEMOZOLOMIDE
     Indication: GLIOBLASTOMA MULTIFORME
     Dosage: 200 MG/M2, QD
     Route: 041
     Dates: start: 20121231, end: 20130101
  15. TEMOZOLOMIDE. [Suspect]
     Active Substance: TEMOZOLOMIDE
     Dosage: 150 MG/M2, QD
     Route: 041
     Dates: start: 20130102, end: 20130104
  16. PASIL [Suspect]
     Active Substance: PAZUFLOXACIN MESILATE
     Dosage: DAILY DOSE UNKNOWN
     Route: 041
     Dates: start: 20130110, end: 20130117
  17. GLYPOSE [Concomitant]
     Dosage: DAILY DOSE UNKNOWN
     Route: 041
     Dates: start: 20121216, end: 20121220
  18. TEMOZOLOMIDE. [Suspect]
     Active Substance: TEMOZOLOMIDE
     Dosage: 150 MG/M2, QD
     Route: 041
     Dates: start: 20130128, end: 20130201
  19. ALEVIATIN [Suspect]
     Active Substance: PHENYTOIN SODIUM
     Dosage: DAILY DOSE UNKNOWN
     Route: 041
     Dates: start: 20121217, end: 20130110
  20. BENAMBAX [Suspect]
     Active Substance: PENTAMIDINE
     Indication: PROPHYLAXIS
     Dosage: DAILY DOSE UNKNOWN, 1 TIME/MONTH
     Route: 055
     Dates: start: 20120111
  21. RINDERON V [Concomitant]
     Active Substance: BETAMETHASONE VALERATE
     Dosage: DAILY DOSE UNKNOWN
     Route: 048
     Dates: end: 20121216

REACTIONS (11)
  - Bacteraemia [Recovered/Resolved]
  - Hepatic function abnormal [Recovered/Resolved]
  - Disseminated intravascular coagulation [Not Recovered/Not Resolved]
  - White blood cell count decreased [Recovered/Resolved]
  - Device related infection [Recovered/Resolved]
  - Pneumonia aspiration [Recovered/Resolved]
  - Epilepsy [Recovered/Resolved]
  - Device related infection [Recovered/Resolved]
  - Asthma [Recovered/Resolved]
  - Anaemia macrocytic [Not Recovered/Not Resolved]
  - Disease progression [Fatal]

NARRATIVE: CASE EVENT DATE: 20121228
